FAERS Safety Report 22722137 (Version 2)
Quarter: 2024Q4

REPORT INFORMATION
  Report Type: Spontaneous
  Country: PA (occurrence: PA)
  Receive Date: 20230719
  Receipt Date: 20241016
  Transmission Date: 20250115
  Serious: Yes (Other)
  Sender: SANDOZ
  Company Number: PA-002147023-NVSC2023PA120221

PATIENT
  Sex: Female

DRUGS (3)
  1. FULVESTRANT [Suspect]
     Active Substance: FULVESTRANT
     Indication: Product used for unknown indication
     Dosage: UNK, QMO
     Route: 065
  2. KISQALI [Suspect]
     Active Substance: RIBOCICLIB
     Dosage: 600 MG, QD
     Route: 048
     Dates: start: 2023
  3. KISQALI [Suspect]
     Active Substance: RIBOCICLIB
     Indication: Breast cancer metastatic
     Dosage: 600 MG, QD (PER 3 TABLETS)
     Route: 048
     Dates: start: 202111

REACTIONS (5)
  - Diabetes mellitus [Unknown]
  - Metastases to bone [Unknown]
  - Onychoclasis [Unknown]
  - Feeling abnormal [Unknown]
  - Alopecia [Unknown]
